FAERS Safety Report 8446449-1 (Version None)
Quarter: 2012Q2

REPORT INFORMATION
  Report Type: 
  Country: None (occurrence: None)
  Receive Date: 20120618
  Receipt Date: 20120322
  Transmission Date: 20120825
  Serious: Yes (Other)
  Sender: FDA-Public Use
  Company Number: US-TEVA-329562USA

PATIENT
  Sex: Female

DRUGS (3)
  1. ACTIQ [Suspect]
     Indication: BACK PAIN
     Dosage: 4000 MICROGRAM;
     Route: 002
     Dates: start: 20020101, end: 20120322
  2. OXYCONTIN [Concomitant]
     Indication: PAIN
     Dosage: 160 MILLIGRAM;
     Route: 048
  3. XANAX [Concomitant]
     Indication: INSOMNIA
     Dosage: .5 MILLIGRAM;
     Route: 048

REACTIONS (8)
  - TREMOR [None]
  - HEADACHE [None]
  - OFF LABEL USE [None]
  - HYPERHIDROSIS [None]
  - WITHDRAWAL SYNDROME [None]
  - DRUG PRESCRIBING ERROR [None]
  - NAUSEA [None]
  - PAIN [None]
